FAERS Safety Report 14713846 (Version 1)
Quarter: 2018Q2

REPORT INFORMATION
  Report Type: Spontaneous
  Country: US (occurrence: US)
  Receive Date: 20180404
  Receipt Date: 20180404
  Transmission Date: 20180711
  Serious: No
  Sender: FDA-Public Use
  Company Number: US-LNK INTERNATIONAL, INC.-2045091

PATIENT
  Age: 79 Year
  Sex: Female

DRUGS (2)
  1. NIGHTTIME SLEEP AID (DOXYLAMINE SUCCINATE) [Suspect]
     Active Substance: DOXYLAMINE SUCCINATE
     Indication: INITIAL INSOMNIA
     Dates: start: 20180319
  2. DIOVAN [Concomitant]
     Active Substance: VALSARTAN

REACTIONS (3)
  - Blood pressure increased [None]
  - Fatigue [None]
  - Dizziness [None]
